FAERS Safety Report 24771844 (Version 1)
Quarter: 2024Q4

REPORT INFORMATION
  Report Type: Spontaneous
  Country: US (occurrence: US)
  Receive Date: 20241224
  Receipt Date: 20241224
  Transmission Date: 20250114
  Serious: No
  Sender: MERCK
  Company Number: US-009507513-2412USA007251

PATIENT
  Age: 24 Year
  Sex: Male

DRUGS (2)
  1. TEMODAR [Suspect]
     Active Substance: TEMOZOLOMIDE
     Indication: Brain stem glioma
     Dosage: 6-WEEK
  2. TEMODAR [Suspect]
     Active Substance: TEMOZOLOMIDE
     Dosage: 12-CYCLES (ADJUVANT)

REACTIONS (1)
  - Product use in unapproved indication [Unknown]
